FAERS Safety Report 7852479 (Version 3)
Quarter: 2015Q4

REPORT INFORMATION
  Report Type: Spontaneous
  Country: IT (occurrence: IT)
  Receive Date: 20110311
  Receipt Date: 20151126
  Transmission Date: 20160305
  Serious: Yes (Other)
  Sender: FDA-Public Use
  Company Number: IT-JNJFOC-20110301213

PATIENT
  Age: 22 Year
  Sex: Male

DRUGS (2)
  1. INFLIXIMAB, RECOMBINANT [Suspect]
     Active Substance: INFLIXIMAB
     Indication: BEHCET^S SYNDROME
     Route: 042
     Dates: start: 200510, end: 200512
  2. INFLIXIMAB, RECOMBINANT [Suspect]
     Active Substance: INFLIXIMAB
     Indication: BEHCET^S SYNDROME
     Dosage: AT TIME 0,14DAYS, THEN MONTHLY FOR 2 MONTHS
     Route: 042
     Dates: start: 200204, end: 200206

REACTIONS (5)
  - Therapeutic response unexpected [Unknown]
  - Product use issue [Unknown]
  - Legionella infection [Unknown]
  - Pulmonary tuberculosis [Recovered/Resolved]
  - Off label use [Unknown]

NARRATIVE: CASE EVENT DATE: 200204
